FAERS Safety Report 4953961-6 (Version None)
Quarter: 2006Q1

REPORT INFORMATION
  Report Type: 
  Country: None (occurrence: None)
  Receive Date: 20060323
  Receipt Date: 20060323
  Transmission Date: 20060701
  Serious: No
  Sender: FDA-Public Use
  Company Number: None

PATIENT
  Age: 35 Year
  Sex: Female
  Weight: 86.1834 kg

DRUGS (1)
  1. YASMIN [Suspect]
     Indication: DYSMENORRHOEA
     Dosage: 28 DAY 1/DAY PO
     Route: 048
     Dates: start: 20020601, end: 20060322

REACTIONS (9)
  - ANXIETY [None]
  - FACE OEDEMA [None]
  - FEELING ABNORMAL [None]
  - LOCAL SWELLING [None]
  - LOSS OF EMPLOYMENT [None]
  - PANIC ATTACK [None]
  - THINKING ABNORMAL [None]
  - TINNITUS [None]
  - VISION BLURRED [None]
